FAERS Safety Report 6699464-2 (Version None)
Quarter: 2010Q2

REPORT INFORMATION
  Report Type: 
  Country: None (occurrence: None)
  Receive Date: 20100427
  Receipt Date: 20100421
  Transmission Date: 20101027
  Serious: Yes (Hospitalization)
  Sender: FDA-Public Use
  Company Number: US-ABBOTT-10P-163-0639933-00

PATIENT
  Sex: Female
  Weight: 52.21 kg

DRUGS (3)
  1. HUMIRA [Suspect]
     Indication: CROHN'S DISEASE
     Route: 058
     Dates: start: 20060101
  2. HUMIRA [Suspect]
     Indication: RHEUMATOID ARTHRITIS
  3. ANTIDEPRESSANTS [Concomitant]
     Indication: DRUG USE FOR UNKNOWN INDICATION

REACTIONS (8)
  - CROHN'S DISEASE [None]
  - DENTAL CARIES [None]
  - DRY MOUTH [None]
  - GASTROINTESTINAL DISORDER [None]
  - INFLAMMATION [None]
  - OESOPHAGITIS [None]
  - ROTATOR CUFF SYNDROME [None]
  - SMALL INTESTINAL OBSTRUCTION [None]
